FAERS Safety Report 19310511 (Version 1)
Quarter: 2021Q2

REPORT INFORMATION
  Report Type: Spontaneous
  Country: FR (occurrence: FR)
  Receive Date: 20210526
  Receipt Date: 20210526
  Transmission Date: 20210717
  Serious: Yes (Other)
  Sender: FDA-Public Use
  Company Number: FR-PFIZER INC-2021552290

PATIENT
  Age: 19 Year
  Sex: Male

DRUGS (3)
  1. ECSTASY [Suspect]
     Active Substance: MIDOMAFETAMINE
     Dosage: A FEW TABLETS ONCE EVERY 3?4 MONTHS
     Route: 048
  2. CANNABIS [Suspect]
     Active Substance: CANNABIS SATIVA SUBSP. INDICA TOP
     Dosage: 1.5 G, 1X/DAY (5?6 JOINTS PER DAY (1?1.5 G OF SHIT PER DAY)
     Route: 055
  3. LYRICA [Suspect]
     Active Substance: PREGABALIN
     Dosage: 4?5 TABLETS, DAILY
     Route: 048

REACTIONS (2)
  - Reversible cerebral vasoconstriction syndrome [Recovering/Resolving]
  - Drug dependence [Not Recovered/Not Resolved]
